FAERS Safety Report 10376097 (Version 3)
Quarter: 2015Q1

REPORT INFORMATION
  Report Type: Report from Study
  Country: DE (occurrence: DE)
  Receive Date: 20140811
  Receipt Date: 20150110
  Transmission Date: 20150720
  Serious: Yes (Hospitalization)
  Sender: FDA-Public Use
  Company Number: DE-BRISTOL-MYERS SQUIBB COMPANY-20475018

PATIENT
  Age: 69 Year
  Sex: Female
  Weight: 63.3 kg

DRUGS (14)
  1. RANITIDINE [Concomitant]
     Active Substance: RANITIDINE\RANITIDINE HYDROCHLORIDE
     Dosage: UNK
     Dates: start: 20130801
  2. MONURIL [Concomitant]
     Active Substance: FOSFOMYCIN SODIUM
     Indication: URINARY TRACT INFECTION
     Dosage: UNK
     Dates: start: 20131106, end: 20131106
  3. LAXOBERAL [Concomitant]
     Active Substance: SODIUM PICOSULFATE
     Indication: CONSTIPATION
  4. PACLITAXEL. [Suspect]
     Active Substance: PACLITAXEL
     Indication: BREAST CANCER METASTATIC
     Dosage: 120 MG, UNK
     Route: 042
     Dates: start: 20130801
  5. ONDANSETRON [Concomitant]
     Active Substance: ONDANSETRON
     Indication: PROPHYLAXIS OF NAUSEA AND VOMITING
     Dosage: UNK
     Dates: start: 20130801
  6. L-THYROXINE [Concomitant]
     Active Substance: LEVOTHYROXINE
     Indication: HYPOTHYROIDISM
     Dosage: 125 ?G, UNK
  7. CIPROFLOXACIN. [Concomitant]
     Active Substance: CIPROFLOXACIN
     Indication: URINARY TRACT INFECTION
     Dosage: UNK
     Dates: start: 20140116, end: 20140126
  8. PANTOZOL [Concomitant]
     Active Substance: PANTOPRAZOLE SODIUM
     Dosage: UNK
     Dates: start: 20131112
  9. CLEXANE [Concomitant]
     Active Substance: ENOXAPARIN SODIUM
     Indication: DEEP VEIN THROMBOSIS
  10. DUROGESIC [Concomitant]
     Active Substance: FENTANYL
     Indication: PAIN
     Dosage: 2007-23DEC13:100MCG/H,125MCG(6YEARS)  23DEC13-ONG:125MCG
     Dates: start: 2007
  11. LYRICA [Concomitant]
     Active Substance: PREGABALIN
     Indication: DEEP VEIN THROMBOSIS
     Dosage: 150 MG, UNK
     Dates: start: 20131121
  12. RIVAROXABAN [Concomitant]
     Active Substance: RIVAROXABAN
  13. DEXAMETHASONE. [Concomitant]
     Active Substance: DEXAMETHASONE
     Indication: PROPHYLAXIS
     Dosage: UNK
     Dates: start: 20130801
  14. FENISTIL [Concomitant]
     Active Substance: DIMETHINDENE
     Dosage: UNK
     Dates: start: 20130801

REACTIONS (2)
  - Abdominal pain [Recovered/Resolved]
  - Gallbladder pain [Not Recovered/Not Resolved]

NARRATIVE: CASE EVENT DATE: 20130925
